FAERS Safety Report 7677453-9 (Version None)
Quarter: 2011Q3

REPORT INFORMATION
  Report Type: 
  Country: None (occurrence: None)
  Receive Date: 20110811
  Receipt Date: 20110204
  Transmission Date: 20111222
  Serious: No
  Sender: FDA-Public Use
  Company Number: US-BRISTOL-MYERS SQUIBB COMPANY-15531403

PATIENT

DRUGS (2)
  1. ATRIPLA [Suspect]
  2. REYATAZ [Suspect]

REACTIONS (1)
  - CD4 LYMPHOCYTES DECREASED [None]
